FAERS Safety Report 11050415 (Version 1)
Quarter: 2015Q2

REPORT INFORMATION
  Report Type: Spontaneous
  Country: US (occurrence: None)
  Receive Date: 20150420
  Receipt Date: 20150420
  Transmission Date: 20150821
  Serious: No
  Sender: FDA-Public Use
  Company Number: None

PATIENT
  Sex: Female

DRUGS (2)
  1. ELAVIL [Suspect]
     Active Substance: AMITRIPTYLINE HYDROCHLORIDE
     Route: 048
  2. ELIDEL [Suspect]
     Active Substance: PIMECROLIMUS
     Route: 061

REACTIONS (6)
  - Drug prescribing error [None]
  - Medication error [None]
  - Wrong drug administered [None]
  - Drug dispensing error [None]
  - Somnolence [None]
  - Coma [None]
